FAERS Safety Report 8962524 (Version 1)
Quarter: 2012Q4

REPORT INFORMATION
  Report Type: Report from Study
  Country: AT (occurrence: AT)
  Receive Date: 20121213
  Receipt Date: 20121213
  Transmission Date: 20130627
  Serious: Yes (Hospitalization)
  Sender: FDA-Public Use
  Company Number: AT-TEVA-2011003072

PATIENT
  Age: 65 Year
  Sex: Female

DRUGS (7)
  1. BENDAMUSTINE HCL [Suspect]
     Indication: NON-HODGKIN^S LYMPHOMA
     Route: 042
     Dates: start: 20101011
  2. BENDAMUSTINE HCL [Suspect]
     Route: 042
  3. RITUXIMAB [Suspect]
     Indication: NON-HODGKIN^S LYMPHOMA
     Route: 042
     Dates: start: 20101011
  4. CONCOR PLUS [Concomitant]
  5. ZOLDEM [Concomitant]
  6. CONCOR [Concomitant]
  7. PARIET [Concomitant]

REACTIONS (2)
  - Gastroenteritis [Recovered/Resolved]
  - Cystitis [Recovered/Resolved]
